FAERS Safety Report 7951802-6 (Version None)
Quarter: 2011Q4

REPORT INFORMATION
  Report Type: 
  Country: None (occurrence: None)
  Receive Date: 20111130
  Receipt Date: 20111130
  Transmission Date: 20120403
  Serious: No
  Sender: FDA-Public Use
  Company Number: None

PATIENT
  Sex: Female
  Weight: 53.18 kg

DRUGS (3)
  1. LEUCOVORIN CALCIUM [Suspect]
     Dosage: 576 MG
  2. FLUOROURACIL [Suspect]
     Dosage: 4172 MG
  3. ELOXATIN [Suspect]
     Dosage: 103 MG

REACTIONS (1)
  - LYMPHOCYTE COUNT ABNORMAL [None]
